FAERS Safety Report 15646558 (Version 3)
Quarter: 2022Q1

REPORT INFORMATION
  Report Type: Spontaneous
  Country: CH (occurrence: CH)
  Receive Date: 20181122
  Receipt Date: 20220203
  Transmission Date: 20220423
  Serious: Yes (Hospitalization)
  Sender: FDA-Public Use
  Company Number: CH-SM-2018-13590

PATIENT
  Age: 61 Year
  Sex: Male
  Weight: 77.5 kg

DRUGS (12)
  1. VANCOCIN [Suspect]
     Active Substance: VANCOMYCIN HYDROCHLORIDE
     Indication: Osteomyelitis
     Route: 042
     Dates: start: 20181003, end: 20181022
  2. CEFEPIME [Suspect]
     Active Substance: CEFEPIME HYDROCHLORIDE
     Indication: Osteomyelitis
     Route: 042
     Dates: start: 20181003, end: 20181022
  3. ASPIRIN [Concomitant]
     Active Substance: ASPIRIN
  4. ATORVASTATIN [Concomitant]
     Active Substance: ATORVASTATIN
  5. IMATINIB MESYLATE [Concomitant]
     Active Substance: IMATINIB MESYLATE
  6. BISOPROLOL [Concomitant]
     Active Substance: BISOPROLOL
  7. KCL HAUSMANN [Concomitant]
  8. METOLAZONE [Concomitant]
     Active Substance: METOLAZONE
  9. NEO-MERCAZOLE [Concomitant]
     Active Substance: CARBIMAZOLE
  10. ENOXAPARIN SODIUM [Concomitant]
     Active Substance: ENOXAPARIN SODIUM
  11. TORSEMIDE [Concomitant]
     Active Substance: TORSEMIDE
  12. PANTOPRAZOLE SODIUM [Concomitant]
     Active Substance: PANTOPRAZOLE SODIUM

REACTIONS (2)
  - Renal tubular injury [Not Recovered/Not Resolved]
  - Incorrect product administration duration [Recovered/Resolved]

NARRATIVE: CASE EVENT DATE: 20181023
